FAERS Safety Report 5164520-7 (Version None)
Quarter: 2006Q4

REPORT INFORMATION
  Report Type: 
  Country: None (occurrence: None)
  Receive Date: 20061205
  Receipt Date: 20061122
  Transmission Date: 20070319
  Serious: Yes (Other)
  Sender: FDA-Public Use
  Company Number: PHBS2006JP18335

PATIENT
  Age: 8 Year
  Sex: Male

DRUGS (2)
  1. CYCLOSPORINE [Suspect]
     Indication: CORD BLOOD TRANSPLANT THERAPY
     Route: 065
     Dates: start: 20060401
  2. METHYLPREDNISOLONE SODIUM SUCCINATE [Concomitant]
     Indication: CORD BLOOD TRANSPLANT THERAPY
     Route: 042
     Dates: start: 20060401

REACTIONS (1)
  - BILE DUCT STONE [None]
